FAERS Safety Report 11589023 (Version 1)
Quarter: 2015Q4

REPORT INFORMATION
  Report Type: Spontaneous
  Country: US (occurrence: None)
  Receive Date: 20151001
  Receipt Date: 20151001
  Transmission Date: 20160304
  Serious: Yes (Hospitalization)
  Sender: FDA-Public Use
  Company Number: None

PATIENT
  Age: 61 Year
  Sex: Female
  Weight: 68.04 kg

DRUGS (3)
  1. METRONIDAZOLE 500 MG TEVA [Suspect]
     Active Substance: METRONIDAZOLE
     Indication: TOOTH INFECTION
     Route: 048
     Dates: start: 20150916, end: 20150921
  2. METRONIDAZOLE 500 MG TEVA [Suspect]
     Active Substance: METRONIDAZOLE
     Indication: POST PROCEDURAL INFECTION
     Route: 048
     Dates: start: 20150916, end: 20150921
  3. CHLORHEXADINE [Suspect]
     Active Substance: CHLORHEXIDINE
     Indication: POSTOPERATIVE CARE
     Dosage: 0.5 OZ BID RINSE AND EXPECTORATE
     Dates: start: 20150904, end: 20150921

REACTIONS (6)
  - Tooth infection [None]
  - Dyspnoea [None]
  - Chest discomfort [None]
  - Abdominal discomfort [None]
  - Fatigue [None]
  - Post procedural infection [None]

NARRATIVE: CASE EVENT DATE: 20150919
